FAERS Safety Report 4504314-6 (Version None)
Quarter: 2004Q4

REPORT INFORMATION
  Report Type: 
  Country: None (occurrence: None)
  Receive Date: 20041116
  Receipt Date: 20041108
  Transmission Date: 20050328
  Serious: Yes (Other)
  Sender: FDA-Public Use
  Company Number: 210296

PATIENT
  Age: 57 Year
  Sex: Male

DRUGS (1)
  1. XOLAIR [Suspect]
     Indication: ASTHMA

REACTIONS (5)
  - AMYLOIDOSIS [None]
  - FIBROSIS [None]
  - POST PROCEDURAL COMPLICATION [None]
  - SENSATION OF FOREIGN BODY [None]
  - TRACHEAL DISORDER [None]
